FAERS Safety Report 13755994 (Version 2)
Quarter: 2017Q3

REPORT INFORMATION
  Report Type: Report from Study
  Country: US (occurrence: US)
  Receive Date: 20170714
  Receipt Date: 20170728
  Transmission Date: 20171127
  Serious: Yes (Hospitalization)
  Sender: FDA-Public Use
  Company Number: US-ROCHE-1962919

PATIENT
  Age: 63 Year
  Sex: Female
  Weight: 55.06 kg

DRUGS (7)
  1. LEXAPRO [Concomitant]
     Active Substance: ESCITALOPRAM OXALATE
     Route: 065
     Dates: start: 201503
  2. PHOSPHA 250 NEUTRAL [Concomitant]
     Active Substance: POTASSIUM PHOSPHATE, MONOBASIC\SODIUM PHOSPHATE, DIBASIC, ANHYDROUS\SODIUM PHOSPHATE, MONOBASIC, MONOHYDRATE
     Route: 065
     Dates: start: 201503
  3. KLOR-CON [Concomitant]
     Active Substance: POTASSIUM CHLORIDE
     Route: 065
     Dates: start: 201503, end: 20170418
  4. LV305 [Suspect]
     Active Substance: INVESTIGATIONAL PRODUCT
     Indication: SYNOVIAL SARCOMA METASTATIC
     Dosage: DOSE: 1 X10^10 VG?DATE OF LAST DOSE PRIOR TO SAE: 27 JUN 2017
     Route: 023
     Dates: start: 20170421, end: 20170627
  5. SYNTHROID [Concomitant]
     Active Substance: LEVOTHYROXINE SODIUM
     Route: 065
     Dates: start: 201601
  6. G305 (NY-ESO-1 RECOMBINANT PROTEIN PLUS GLA-SE) [Suspect]
     Active Substance: INVESTIGATIONAL PRODUCT
     Indication: SYNOVIAL SARCOMA METASTATIC
     Dosage: 5 UG GLA-SE + 250 UG NY-ESO-1?DATE OF LAST DOSE PRIOR TO SAE: 13 JUN 2017
     Route: 030
     Dates: start: 20170516, end: 20170613
  7. ATEZOLIZUMAB. [Suspect]
     Active Substance: ATEZOLIZUMAB
     Indication: SYNOVIAL SARCOMA METASTATIC
     Route: 042
     Dates: start: 20170421, end: 20170620

REACTIONS (5)
  - Condition aggravated [None]
  - Malignant neoplasm progression [None]
  - Haemoptysis [Recovered/Resolved]
  - Metastases to pleura [None]
  - Synovial sarcoma metastatic [None]

NARRATIVE: CASE EVENT DATE: 20170706
